FAERS Safety Report 5759554-5 (Version None)
Quarter: 2008Q2

REPORT INFORMATION
  Report Type: 
  Country: None (occurrence: None)
  Receive Date: 20080604
  Receipt Date: 20080604
  Transmission Date: 20081010
  Serious: Yes (Life-Threatening, Hospitalization)
  Sender: FDA-Public Use
  Company Number: None

PATIENT
  Age: 17 Year
  Sex: Female
  Weight: 58.9676 kg

DRUGS (5)
  1. TORADOL [Suspect]
     Indication: POSTOPERATIVE ANALGESIA
     Dosage: 30MG X1 IV
     Route: 042
     Dates: start: 20080428
  2. DECADRON [Concomitant]
  3. VERSED [Concomitant]
  4. FENTANYL [Concomitant]
  5. DIPRIVAN [Concomitant]

REACTIONS (8)
  - ANAPHYLACTIC REACTION [None]
  - ATELECTASIS [None]
  - CARBON DIOXIDE DECREASED [None]
  - CIRCULATORY COLLAPSE [None]
  - ERYTHEMA [None]
  - OXYGEN SATURATION DECREASED [None]
  - POST PROCEDURAL COMPLICATION [None]
  - RESPIRATORY RATE DECREASED [None]
